FAERS Safety Report 7004594-1 (Version None)
Quarter: 2010Q3

REPORT INFORMATION
  Report Type: 
  Country: None (occurrence: None)
  Receive Date: 20100921
  Receipt Date: 20100908
  Transmission Date: 20110219
  Serious: Yes (Hospitalization)
  Sender: FDA-Public Use
  Company Number: ES-ELI_LILLY_AND_COMPANY-ES201009003103

PATIENT
  Sex: Female
  Weight: 75 kg

DRUGS (16)
  1. FORTEO [Suspect]
     Indication: OSTEOPOROSIS
     Dosage: 20 UG, DAILY (1/D)
     Route: 058
     Dates: start: 20100211
  2. AMLODIPINE [Concomitant]
     Dosage: 10 MG, DAILY (1/D)
     Route: 048
  3. RAMIPRIL [Concomitant]
     Dosage: 1 UNK, DAILY (1/D)
     Route: 048
  4. GABAPENTINA [Concomitant]
     Indication: PAIN
     Dosage: 300 MG, EVERY 8 HRS
     Route: 048
  5. FLUOXETINA [Concomitant]
     Dosage: 20 MG, UNKNOWN
     Route: 048
  6. CYMBALTA [Concomitant]
     Indication: DEPRESSION
     Dosage: UNK, UNKNOWN
     Route: 048
  7. FERROGRADUMET [Concomitant]
     Indication: ANAEMIA
     Dosage: UNK, UNKNOWN
     Route: 048
  8. LEDERFOLIN [Concomitant]
     Indication: TEMPORAL ARTERITIS
     Dosage: UNK, WEEKLY (1/W)
     Route: 048
  9. MATRIX [Concomitant]
     Indication: PAIN
     Dosage: 1 PATCH, EVERY 72 HOURS
     Route: 048
  10. PARACETAMOL [Concomitant]
     Indication: PAIN
     Dosage: UNK, AS NEEDED
     Route: 065
  11. FENTANILO [Concomitant]
     Indication: PAIN
     Dosage: UNK, AS NEEDED
     Route: 065
  12. LORAZEPAM [Concomitant]
     Indication: AFRICAN TRYPANOSOMIASIS
     Dosage: UNK, DAILY (1/D)
     Route: 048
  13. NOBRITOL F [Concomitant]
     Dosage: UNK, DAILY (1/D)
     Route: 048
  14. VALIUM [Concomitant]
     Indication: PAIN
     Dosage: 5 MG, DAILY (1/D)
     Route: 048
  15. ALPRAZOLAM [Concomitant]
     Indication: PAIN
     Dosage: 1 MG, DAILY (1/D)
     Route: 048
  16. METHOTREXATE [Concomitant]
     Indication: TEMPORAL ARTERITIS
     Dosage: UNK, WEEKLY (1/W)
     Route: 048

REACTIONS (3)
  - DYSPNOEA [None]
  - INCREASED UPPER AIRWAY SECRETION [None]
  - LUNG DISORDER [None]
